FAERS Safety Report 5599422-5 (Version None)
Quarter: 2008Q1

REPORT INFORMATION
  Report Type: 
  Country: None (occurrence: None)
  Receive Date: 20080122
  Receipt Date: 20080110
  Transmission Date: 20080703
  Serious: Yes (Other)
  Sender: FDA-Public Use
  Company Number: IE-PFIZER INC-2007105685

PATIENT
  Sex: Female

DRUGS (6)
  1. CHANTIX [Suspect]
     Route: 048
     Dates: start: 20070911, end: 20071115
  2. PANTOPRAZOLE [Concomitant]
     Route: 048
  3. ATORVASTATIN [Concomitant]
     Route: 048
  4. ESCITALOPRAM [Concomitant]
     Route: 048
  5. ASPIRIN [Concomitant]
     Route: 048
  6. TERBINAFINE [Concomitant]
     Route: 048

REACTIONS (2)
  - AGEUSIA [None]
  - DYSGEUSIA [None]
